FAERS Safety Report 9912713 (Version 1)
Quarter: 2014Q1

REPORT INFORMATION
  Report Type: Spontaneous
  Country: ES (occurrence: None)
  Receive Date: 20140214
  Receipt Date: 20140214
  Transmission Date: 20141002
  Serious: Yes (Other)
  Sender: FDA-Public Use
  Company Number: 2014AP001084

PATIENT
  Age: 61 Year
  Sex: Male

DRUGS (2)
  1. PRAVASTATIN [Suspect]
  2. SITAGLIPTIN [Suspect]

REACTIONS (3)
  - Arthralgia [None]
  - Joint stiffness [None]
  - Myalgia [None]
